FAERS Safety Report 7731035-9 (Version None)
Quarter: 2011Q3

REPORT INFORMATION
  Report Type: 
  Country: None (occurrence: None)
  Receive Date: 20110906
  Receipt Date: 20110906
  Transmission Date: 20111222
  Serious: Yes (Hospitalization)
  Sender: FDA-Public Use
  Company Number: None

PATIENT
  Age: 80 Year
  Sex: Female
  Weight: 45.8 kg

DRUGS (1)
  1. ORAL CLOFARABINE [Suspect]
     Indication: ACUTE MYELOID LEUKAEMIA
     Dosage: 20  MG
     Route: 048
     Dates: start: 20110821, end: 20110825

REACTIONS (1)
  - FEBRILE NEUTROPENIA [None]
